FAERS Safety Report 5002211-3 (Version None)
Quarter: 2006Q2

REPORT INFORMATION
  Report Type: 
  Country: None (occurrence: None)
  Receive Date: 20060510
  Receipt Date: 20060427
  Transmission Date: 20061013
  Serious: Yes (Other)
  Sender: FDA-Public Use
  Company Number: 2006057208

PATIENT
  Age: 72 Year
  Sex: Male

DRUGS (1)
  1. ZYVOX [Suspect]
     Indication: STAPHYLOCOCCAL INFECTION
     Dosage: INTRAVENOUS
     Route: 042
     Dates: start: 20060418

REACTIONS (3)
  - ECONOMIC PROBLEM [None]
  - INJECTION SITE THROMBOSIS [None]
  - WEIGHT FLUCTUATION [None]
